FAERS Safety Report 12128029 (Version 3)
Quarter: 2016Q1

REPORT INFORMATION
  Report Type: Report from Study
  Country: NL (occurrence: NL)
  Receive Date: 20160229
  Receipt Date: 20160303
  Transmission Date: 20160526
  Serious: Yes (Hospitalization, Other)
  Sender: FDA-Public Use
  Company Number: NL-ABBVIE-16P-114-1568248-00

PATIENT
  Age: 78 Year
  Sex: Female

DRUGS (1)
  1. DUODOPA [Suspect]
     Active Substance: CARBIDOPA\LEVODOPA
     Indication: PARKINSON^S DISEASE
     Dosage: MORNING DOSE: 8, CONTINUOUS DOSE :3.7, EXTRA DOSE: 2.0, NIGHT DOSE: 1.9
     Route: 050
     Dates: start: 20060330

REACTIONS (5)
  - Dementia [Not Recovered/Not Resolved]
  - Device issue [Recovered/Resolved with Sequelae]
  - Hallucination [Not Recovered/Not Resolved]
  - Device dislocation [Not Recovered/Not Resolved]
  - Hyperkinesia [Not Recovered/Not Resolved]

NARRATIVE: CASE EVENT DATE: 201602
